FAERS Safety Report 23224330 (Version 5)
Quarter: 2024Q1

REPORT INFORMATION
  Report Type: Spontaneous
  Country: US (occurrence: US)
  Receive Date: 20231124
  Receipt Date: 20240226
  Transmission Date: 20240409
  Serious: Yes (Other)
  Sender: FDA-Public Use
  Company Number: US-SA-SAC20231122000187

PATIENT
  Age: 57 Year
  Sex: Female

DRUGS (1)
  1. DUPIXENT [Suspect]
     Active Substance: DUPILUMAB
     Indication: Eosinophilic oesophagitis
     Dosage: 300 MG, QW
     Route: 058
     Dates: start: 202309, end: 20231109

REACTIONS (9)
  - Ophthalmic herpes simplex [Unknown]
  - Eye pain [Unknown]
  - Ocular discomfort [Unknown]
  - Lacrimation increased [Unknown]
  - Ocular hyperaemia [Unknown]
  - Eye swelling [Unknown]
  - Corneal lesion [Unknown]
  - Chest discomfort [Unknown]
  - Injection site pain [Unknown]

NARRATIVE: CASE EVENT DATE: 20230101
